FAERS Safety Report 22203882 (Version 2)
Quarter: 2023Q2

REPORT INFORMATION
  Report Type: Report from Study
  Country: US (occurrence: US)
  Receive Date: 20230412
  Receipt Date: 20230418
  Transmission Date: 20230721
  Serious: Yes (Hospitalization)
  Sender: FDA-Public Use
  Company Number: US-SEATTLE GENETICS-2023SGN03544

PATIENT

DRUGS (2)
  1. TUCATINIB [Suspect]
     Active Substance: TUCATINIB
     Indication: Product used for unknown indication
     Dosage: 300 MG, QD
     Route: 048
     Dates: start: 20230106
  2. TRASTUZUMAB [Suspect]
     Active Substance: TRASTUZUMAB
     Indication: Product used for unknown indication
     Dosage: 600 MG
     Route: 058
     Dates: start: 20230106

REACTIONS (5)
  - Cardiac failure [Recovered/Resolved with Sequelae]
  - Pleural effusion [Recovered/Resolved]
  - Troponin T increased [Recovering/Resolving]
  - Pericardial effusion [Recovered/Resolved]
  - Sinus tachycardia [Recovered/Resolved]

NARRATIVE: CASE EVENT DATE: 20230319
